FAERS Safety Report 9892286 (Version 1)
Quarter: 2014Q1

REPORT INFORMATION
  Report Type: Report from Study
  Country: BR (occurrence: BR)
  Receive Date: 20140212
  Receipt Date: 20140212
  Transmission Date: 20141002
  Serious: Yes (Hospitalization, Other)
  Sender: FDA-Public Use
  Company Number: PHHY2014BR016278

PATIENT
  Sex: Male

DRUGS (8)
  1. GALVUS [Suspect]
     Dosage: UNK UKN, UNK
  2. GALVUS MET [Suspect]
     Indication: DIABETES MELLITUS
     Dosage: 1 DF, (850 MG METF/50 MG VILDA) BID
     Route: 048
     Dates: start: 201401
  3. ATENOLOL [Suspect]
     Indication: HYPERTENSION
     Dosage: UNK UKN, QD, (50 MG)
  4. GLIFAGE [Suspect]
     Indication: DIABETES MELLITUS
     Dosage: 1 DF, BID, (500 MG)
     Route: 048
  5. DOXAZOSIN [Concomitant]
     Dosage: 1 DF, QD, (4 MG, AT NIGHT)
  6. FINASTERIDE [Concomitant]
     Indication: PROSTATIC DISORDER
     Dosage: 1 DF, QD, (5 MG IN THE MORNING)
  7. SIMVASTATIN [Concomitant]
     Indication: BLOOD CHOLESTEROL ABNORMAL
     Dosage: UNK UKN, UNK
  8. PURAN T4 [Concomitant]
     Indication: THYROID DISORDER
     Dosage: UNK UKN, UNK

REACTIONS (6)
  - Gastrointestinal disorder [Not Recovered/Not Resolved]
  - General physical condition abnormal [Not Recovered/Not Resolved]
  - Renal failure [Not Recovered/Not Resolved]
  - Dehydration [Not Recovered/Not Resolved]
  - Urine output decreased [Not Recovered/Not Resolved]
  - Diarrhoea [Recovering/Resolving]
